FAERS Safety Report 4354052-8 (Version None)
Quarter: 2004Q2

REPORT INFORMATION
  Report Type: 
  Country: None (occurrence: None)
  Receive Date: 20040430
  Receipt Date: 20040422
  Transmission Date: 20050107
  Serious: Yes (Other)
  Sender: FDA-Public Use
  Company Number: 6008541

PATIENT
  Age: 54 Year
  Sex: Male

DRUGS (9)
  1. CARDICOR (TABLETS) (BISOPROLOL) [Suspect]
     Indication: ARTERIAL DISORDER
     Dosage: 3,75 MG ORAL
     Route: 048
  2. CARDICOR (TABLETS) (BISOPROLOL) [Suspect]
     Indication: ESSENTIAL HYPERTENSION
     Dosage: 3,75 MG ORAL
     Route: 048
  3. ISTIN (AMLODIPINE BESILATE) [Concomitant]
  4. ASPIRIN [Concomitant]
  5. RAMIPRIL [Concomitant]
  6. PLAVIX [Concomitant]
  7. DELTACORTRIL [Concomitant]
  8. CYCLOSPORINE [Concomitant]
  9. NITROGLYCERIN [Concomitant]

REACTIONS (1)
  - DEAFNESS [None]
